FAERS Safety Report 9512169 (Version 1)
Quarter: 2013Q3

REPORT INFORMATION
  Report Type: Spontaneous
  Country: US (occurrence: US)
  Receive Date: 20130910
  Receipt Date: 20130910
  Transmission Date: 20140515
  Serious: Yes (Other)
  Sender: FDA-Public Use
  Company Number: US-RB-057772-13

PATIENT
  Age: 57 Year
  Sex: Female

DRUGS (3)
  1. MUCINEX SINUS-MAX PRESSURE AND PAIN [Suspect]
     Indication: PRODUCT USED FOR UNKNOWN INDICATION
     Dosage: TOOK 3 DOSES OF 2 CAPLETS ABOUT SIX OR SEVEN HOURS APART, LAST TOOK ON 05-SEP-2013
     Route: 048
     Dates: start: 20130904
  2. MUCINEX SINUS-MAX PRESSURE AND PAIN [Suspect]
  3. MUCINEX SINUS-MAX PRESSURE AND PAIN [Suspect]

REACTIONS (1)
  - Blood urine present [Not Recovered/Not Resolved]
